FAERS Safety Report 18224609 (Version 5)
Quarter: 2021Q2

REPORT INFORMATION
  Report Type: Spontaneous
  Country: US (occurrence: US)
  Receive Date: 20200902
  Receipt Date: 20210628
  Transmission Date: 20210717
  Serious: Yes (Hospitalization, Other)
  Sender: FDA-Public Use
  Company Number: US-GILEAD-2020-0492507

PATIENT
  Age: 56 Year
  Sex: Male
  Weight: 77.1 kg

DRUGS (11)
  1. TRUVADA [Suspect]
     Active Substance: EMTRICITABINE\TENOFOVIR DISOPROXIL FUMARATE
     Indication: HIV INFECTION
     Dosage: UNK
     Route: 048
     Dates: start: 20051007, end: 20060913
  2. ACETAMINOPHEN. [Concomitant]
     Active Substance: ACETAMINOPHEN
  3. ISENTRESS [Concomitant]
     Active Substance: RALTEGRAVIR POTASSIUM
  4. SUSTIVA [Concomitant]
     Active Substance: EFAVIRENZ
  5. ATORVASTATIN [Concomitant]
     Active Substance: ATORVASTATIN
  6. TRIZIVIR [Concomitant]
     Active Substance: ABACAVIR SULFATE\LAMIVUDINE\ZIDOVUDINE
  7. LISINOPRIL. [Concomitant]
     Active Substance: LISINOPRIL
  8. PREZCOBIX [Concomitant]
     Active Substance: COBICISTAT\DARUNAVIR ETHANOLATE
  9. PREDNISONE. [Concomitant]
     Active Substance: PREDNISONE
  10. ASPIRIN (E.C.) [Concomitant]
     Active Substance: ASPIRIN
  11. INTELENCE [Concomitant]
     Active Substance: ETRAVIRINE

REACTIONS (15)
  - Back pain [Unknown]
  - Osteonecrosis [Not Recovered/Not Resolved]
  - Anhedonia [Unknown]
  - Hyperkalaemia [Unknown]
  - Chronic kidney disease [Not Recovered/Not Resolved]
  - Tooth loss [Recovered/Resolved]
  - Arthralgia [Unknown]
  - Pain [Unknown]
  - Renal failure [Not Recovered/Not Resolved]
  - Depression [Unknown]
  - End stage renal disease [Unknown]
  - Anxiety [Unknown]
  - Emotional distress [Unknown]
  - Gait disturbance [Unknown]
  - Asthenia [Unknown]

NARRATIVE: CASE EVENT DATE: 2006
